FAERS Safety Report 23807893 (Version 2)
Quarter: 2024Q2

REPORT INFORMATION
  Report Type: Report from Study
  Country: CO (occurrence: CO)
  Receive Date: 20240502
  Receipt Date: 20240508
  Transmission Date: 20240716
  Serious: Yes (Other)
  Sender: FDA-Public Use
  Company Number: CO-BAYER-2024A065184

PATIENT
  Age: 77 Year
  Sex: Female

DRUGS (2)
  1. EYLEA [Suspect]
     Active Substance: AFLIBERCEPT
     Indication: Neovascular age-related macular degeneration
     Dosage: UNK, RIGHT EYE;SOLUTION FOR INJECTION: 40 MG/ML
     Dates: start: 20220616, end: 20220616
  2. EYLEA [Suspect]
     Active Substance: AFLIBERCEPT
     Dosage: 2 MG, RIGHT EYE; SOLUTION FOR INJECTION, 40 MG/ML
     Route: 031
     Dates: start: 20230123

REACTIONS (2)
  - Retinal haemorrhage [Not Recovered/Not Resolved]
  - Cataract [Unknown]

NARRATIVE: CASE EVENT DATE: 20240429
